FAERS Safety Report 13580482 (Version 3)
Quarter: 2017Q2

REPORT INFORMATION
  Report Type: Spontaneous
  Country: CL (occurrence: CL)
  Receive Date: 20170525
  Receipt Date: 20170608
  Transmission Date: 20170830
  Serious: Yes (Hospitalization, Other)
  Sender: FDA-Public Use
  Company Number: CL-SUN PHARMACEUTICAL INDUSTRIES LTD-2017RR-141487

PATIENT
  Sex: Male
  Weight: 3.03 kg

DRUGS (8)
  1. GLUCAGON. [Concomitant]
     Active Substance: GLUCAGON
     Indication: HYPERINSULINAEMIC HYPOGLYCAEMIA
     Dosage: 8 UG/KG/H
     Route: 058
  2. OCTREOTIDE. [Suspect]
     Active Substance: OCTREOTIDE
     Dosage: 5 UG/KG, DAILY
     Route: 058
  3. OCTREOTIDE. [Suspect]
     Active Substance: OCTREOTIDE
     Indication: HYPERINSULINAEMIC HYPOGLYCAEMIA
     Dosage: 25 UG/KG DAILY
     Route: 058
  4. DIAZOXIDE [Suspect]
     Active Substance: DIAZOXIDE
     Indication: HYPERINSULINAEMIC HYPOGLYCAEMIA
     Dosage: 5 TO 20 MG/K/DAY
     Route: 065
  5. GLUCOSE [Concomitant]
     Active Substance: DEXTROSE
     Indication: HYPERINSULINAEMIC HYPOGLYCAEMIA
     Dosage: UP TO 19MG/KG/MIN
     Route: 042
  6. GLUCAGON. [Concomitant]
     Active Substance: GLUCAGON
     Dosage: 5 UG/KG/H
     Route: 058
  7. INSULIN [Concomitant]
     Active Substance: INSULIN NOS
     Indication: HYPERINSULINAEMIC HYPOGLYCAEMIA
     Dosage: 36 UU/ML
     Route: 065
  8. HYDROCHLOROTHIAZIDE. [Suspect]
     Active Substance: HYDROCHLOROTHIAZIDE
     Indication: HYPERINSULINAEMIC HYPOGLYCAEMIA

REACTIONS (2)
  - Drug ineffective [Unknown]
  - Cholecystitis acute [Unknown]
